FAERS Safety Report 26188383 (Version 1)
Quarter: 2025Q4

REPORT INFORMATION
  Report Type: Spontaneous
  Country: US (occurrence: None)
  Receive Date: 20251222
  Receipt Date: 20251222
  Transmission Date: 20260117
  Serious: No
  Sender: Harrow Health
  Company Number: US-HARROW-HAR-2025-US-01011

PATIENT
  Age: 68 Year
  Sex: Female

DRUGS (4)
  1. VEVYE [Suspect]
     Active Substance: CYCLOSPORINE
     Route: 047
     Dates: start: 20250829
  2. Meibo [Concomitant]
  3. Optase [Concomitant]
  4. Allegro eye drop [Concomitant]

REACTIONS (1)
  - Eye irritation [Not Recovered/Not Resolved]
